FAERS Safety Report 6148819-3 (Version None)
Quarter: 2009Q2

REPORT INFORMATION
  Report Type: 
  Country: None (occurrence: None)
  Receive Date: 20090408
  Receipt Date: 20090331
  Transmission Date: 20091009
  Serious: Yes (Hospitalization)
  Sender: FDA-Public Use
  Company Number: GR-ABBOTT-09P-066-0498113-00

PATIENT
  Age: 73 Year
  Sex: Male
  Weight: 77.8 kg

DRUGS (14)
  1. ZEMPLAR [Suspect]
     Indication: HYPERPARATHYROIDISM SECONDARY
     Route: 042
     Dates: start: 20080809
  2. ARANESP [Concomitant]
     Indication: ANAEMIA
     Route: 042
  3. NEUROBION [Concomitant]
     Indication: VITAMIN SUPPLEMENTATION
     Dosage: 1 AMP/HEMODIALYSIS
     Route: 042
  4. SUPERAMINE [Concomitant]
     Indication: VITAMIN SUPPLEMENTATION
     Dosage: 1 AMP/HEMODIALYSIS
     Route: 042
  5. VENOFER [Concomitant]
     Indication: ANAEMIA
     Route: 042
  6. ANGORON [Concomitant]
     Indication: ATRIAL FIBRILLATION
     Dosage: 1/2/DAY
     Route: 048
  7. DILATREND [Concomitant]
     Indication: CORONARY ARTERY DISEASE
     Dosage: 6.25 , 1/2 TAB 2 IN 1 DAYS
     Route: 048
  8. MONOSORDIL [Concomitant]
     Indication: CORONARY ARTERY DISEASE
     Route: 048
  9. RENAGEL [Concomitant]
     Indication: HYPERPHOSPHATAEMIA
     Route: 048
  10. ZYLAPOUR [Concomitant]
     Indication: HYPERURICAEMIA
     Dosage: 300MG, 1/2 TAB 3 IN 1 WEEKS
     Route: 048
  11. ZANTAC [Concomitant]
     Indication: GASTROINTESTINAL DISORDER THERAPY
     Dosage: 1 AMP/HEMODIALYSIS;
     Route: 042
  12. FILICINE [Concomitant]
     Indication: VITAMIN SUPPLEMENTATION
     Route: 048
  13. FORSENOL [Concomitant]
     Indication: BLOOD PHOSPHORUS ABNORMAL
     Dosage: 750
     Route: 048
  14. ZURCAZOL [Concomitant]
     Indication: PROPHYLAXIS AGAINST GASTROINTESTINAL ULCER
     Dosage: 40, 1 IN 1 DAYS
     Route: 048

REACTIONS (2)
  - CHEST PAIN [None]
  - CORONARY ARTERY DISEASE [None]
